FAERS Safety Report 18423077 (Version 1)
Quarter: 2020Q4

REPORT INFORMATION
  Report Type: Spontaneous
  Country: US (occurrence: US)
  Receive Date: 20201023
  Receipt Date: 20201023
  Transmission Date: 20210114
  Serious: Yes (Other)
  Sender: FDA-Public Use
  Company Number: US-ABBVIE-20K-163-3520766-00

PATIENT

DRUGS (1)
  1. ORILISSA [Suspect]
     Active Substance: ELAGOLIX SODIUM
     Indication: ENDOMETRIOSIS
     Route: 048
     Dates: start: 20200810

REACTIONS (6)
  - Skin laceration [Unknown]
  - Psychiatric symptom [Unknown]
  - Emotional distress [Unknown]
  - Pain [Unknown]
  - Suicidal ideation [Unknown]
  - Feeling of despair [Unknown]

NARRATIVE: CASE EVENT DATE: 20200810
